FAERS Safety Report 25419107 (Version 2)
Quarter: 2025Q4

REPORT INFORMATION
  Report Type: Spontaneous
  Country: JP (occurrence: JP)
  Receive Date: 20250610
  Receipt Date: 20251127
  Transmission Date: 20260118
  Serious: Yes (Death, Hospitalization, Other)
  Sender: GILEAD
  Company Number: JP-GILEAD-2025-0713208

PATIENT
  Age: 51 Year
  Sex: Female
  Weight: 91.9 kg

DRUGS (2)
  1. TRODELVY [Suspect]
     Active Substance: SACITUZUMAB GOVITECAN-HZIY
     Indication: Triple negative breast cancer
     Dosage: 820 MG, QD
     Route: 041
     Dates: start: 20250421, end: 20250421
  2. ENHERTU [Concomitant]
     Active Substance: FAM-TRASTUZUMAB DERUXTECAN-NXKI
     Dosage: UNK
     Dates: start: 202412

REACTIONS (9)
  - Triple negative breast cancer [Fatal]
  - Bacteraemia [Recovered/Resolved]
  - Malignant pleural effusion [Unknown]
  - Bacteraemia [Unknown]
  - Febrile neutropenia [Recovered/Resolved]
  - Anaemia [Recovered/Resolved]
  - Thrombocytopenia [Recovering/Resolving]
  - Staphylococcal infection [Unknown]
  - Breast ulceration [Unknown]

NARRATIVE: CASE EVENT DATE: 20250427
